FAERS Safety Report 20642749 (Version 1)
Quarter: 2022Q1

REPORT INFORMATION
  Report Type: Spontaneous
  Country: US (occurrence: US)
  Receive Date: 20220328
  Receipt Date: 20220328
  Transmission Date: 20220423
  Serious: Yes (Life-Threatening, Hospitalization, Other)
  Sender: FDA-Public Use
  Company Number: US-MLMSERVICE-20220316-3434625-1

PATIENT
  Age: 65 Year
  Sex: Female

DRUGS (4)
  1. DAPTOMYCIN [Suspect]
     Active Substance: DAPTOMYCIN
     Indication: Abdominal abscess
  2. LINEZOLID [Suspect]
     Active Substance: LINEZOLID
     Indication: Abdominal abscess
  3. FLUCONAZOLE [Concomitant]
     Active Substance: FLUCONAZOLE
     Indication: Abdominal abscess
  4. MEROPENEM [Concomitant]
     Active Substance: MEROPENEM
     Indication: Abdominal abscess

REACTIONS (8)
  - Leukocytosis [Unknown]
  - Device related infection [Recovered/Resolved]
  - Toxicity to various agents [Unknown]
  - Pathogen resistance [Unknown]
  - Abdominal pain [Unknown]
  - Multiple-drug resistance [Unknown]
  - Enterococcal bacteraemia [Recovered/Resolved]
  - Off label use [Unknown]
